FAERS Safety Report 13945488 (Version 1)
Quarter: 2017Q3

REPORT INFORMATION
  Report Type: Spontaneous
  Country: US (occurrence: US)
  Receive Date: 20170907
  Receipt Date: 20170907
  Transmission Date: 20171128
  Serious: No
  Sender: FDA-Public Use
  Company Number: US-ALLERGAN-1735153US

PATIENT
  Age: 30 Year
  Sex: Female

DRUGS (2)
  1. DIFFERIN [Concomitant]
     Active Substance: ADAPALENE
     Indication: ACNE
     Dosage: UNK UNK, QHS
     Route: 061
     Dates: start: 201706, end: 201706
  2. ACZONE [Suspect]
     Active Substance: DAPSONE
     Indication: ACNE
     Dosage: UNK UNK, QAM
     Route: 061
     Dates: start: 201707, end: 201707

REACTIONS (1)
  - Skin bacterial infection [Recovered/Resolved]

NARRATIVE: CASE EVENT DATE: 201707
